FAERS Safety Report 25860709 (Version 1)
Quarter: 2025Q3

REPORT INFORMATION
  Report Type: Spontaneous
  Country: US (occurrence: None)
  Receive Date: 20250926
  Receipt Date: 20250926
  Transmission Date: 20251020
  Serious: Yes (Hospitalization)
  Sender: FDA-CTU
  Company Number: None

PATIENT
  Sex: Female

DRUGS (6)
  1. WINREVAIR [Suspect]
     Active Substance: SOTATERCEPT-CSRK
     Indication: Pulmonary arterial hypertension
     Route: 058
     Dates: start: 20240522
  2. AMBRISENTAN [Suspect]
     Active Substance: AMBRISENTAN
     Dosage: FREQUENCY : DAILY;?
  3. STERILE DILUENT FOR REMODULIN [Concomitant]
     Active Substance: WATER
  4. REMODULIN [Concomitant]
     Active Substance: TREPROSTINIL
  5. TADALAFIL [Concomitant]
     Active Substance: TADALAFIL
  6. BOSENTAN [Suspect]
     Active Substance: BOSENTAN
     Dosage: FREQUENCY : TWICE A DAY;?

REACTIONS (5)
  - Feeling abnormal [None]
  - Nausea [None]
  - Anaemia [None]
  - Therapy cessation [None]
  - Therapy change [None]
